FAERS Safety Report 4575726-X (Version None)
Quarter: 2005Q1

REPORT INFORMATION
  Report Type: 
  Country: None (occurrence: None)
  Receive Date: 20050127
  Receipt Date: 20040929
  Transmission Date: 20050727
  Serious: No
  Sender: FDA-Public Use
  Company Number: USA040979702

PATIENT
  Age: 6 Year
  Sex: Male
  Weight: 19 kg

DRUGS (3)
  1. STRATTERA [Suspect]
     Indication: ATTENTION DEFICIT/HYPERACTIVITY DISORDER
     Dosage: 18 MG/2 DAY
     Dates: start: 20040401
  2. PROZAC [Suspect]
     Dates: start: 20040401, end: 20040901
  3. MLATONIN [Concomitant]

REACTIONS (7)
  - AGGRESSION [None]
  - DECREASED APPETITE [None]
  - DRUG EFFECT DECREASED [None]
  - IMPULSE-CONTROL DISORDER [None]
  - INSOMNIA [None]
  - PRESCRIBED OVERDOSE [None]
  - SOMNOLENCE [None]
